FAERS Safety Report 6781927-2 (Version None)
Quarter: 2010Q2

REPORT INFORMATION
  Report Type: 
  Country: None (occurrence: None)
  Receive Date: 20100618
  Receipt Date: 20100618
  Transmission Date: 20101027
  Serious: Yes (Hospitalization)
  Sender: FDA-Public Use
  Company Number: None

PATIENT
  Sex: Male
  Weight: 117.5 kg

DRUGS (6)
  1. CARBOPLATIN [Suspect]
     Dosage: 1385 MG
  2. ERBITUX [Suspect]
     Dosage: 965 MG
  3. TAXOL [Suspect]
     Dosage: 550 MG
  4. COREG [Concomitant]
  5. COZAAR [Concomitant]
  6. LASIX [Concomitant]

REACTIONS (5)
  - ANAEMIA [None]
  - CARDIAC FAILURE CONGESTIVE [None]
  - CONDITION AGGRAVATED [None]
  - HYPONATRAEMIA [None]
  - HYPOTENSION [None]
